FAERS Safety Report 9663568 (Version 2)
Quarter: 2014Q1

REPORT INFORMATION
  Report Type: Spontaneous
  Country: US (occurrence: US)
  Receive Date: 20131101
  Receipt Date: 20140129
  Transmission Date: 20141002
  Serious: No
  Sender: FDA-Public Use
  Company Number: US-PFIZER INC-2013311815

PATIENT
  Age: 63 Year
  Sex: Female
  Weight: 95.2 kg

DRUGS (7)
  1. NEURONTIN [Suspect]
     Indication: NEURALGIA
     Dosage: 800 MG, 3X/DAY
  2. NEURONTIN [Suspect]
     Indication: DIABETIC NEUROPATHY
  3. LANTUS [Concomitant]
     Indication: DIABETES MELLITUS
     Dosage: 130 MG, 1X/DAY
  4. NOVOLIN R [Concomitant]
     Indication: DIABETES MELLITUS
     Dosage: UNK
  5. ZOLOFT [Concomitant]
     Indication: DEPRESSION
     Dosage: 150 MG, 1X/DAY
  6. ZOLOFT [Concomitant]
     Indication: OBSESSIVE-COMPULSIVE DISORDER
  7. LOPID [Concomitant]
     Indication: BLOOD CHOLESTEROL ABNORMAL
     Dosage: 600 MG, 2X/DAY

REACTIONS (1)
  - Drug ineffective [Unknown]
